FAERS Safety Report 4689452-X (Version None)
Quarter: 2005Q2

REPORT INFORMATION
  Report Type: 
  Country: None (occurrence: None)
  Receive Date: 20050311
  Receipt Date: 20050311
  Transmission Date: 20051028
  Serious: Yes (Hospitalization, Other)
  Sender: FDA-Public Use
  Company Number: None

PATIENT
  Sex: Male

DRUGS (5)
  1. PHENYTOIN SODIUM [Suspect]
     Indication: EPILEPSY
     Dosage: 230 MG DAILY
  2. LAMICTAL [Concomitant]
  3. LORAZEPAM [Concomitant]
  4. RISPERIDONE [Concomitant]
  5. M.V.I. [Concomitant]

REACTIONS (3)
  - CONVULSION [None]
  - DRUG LEVEL DECREASED [None]
  - PHARMACEUTICAL PRODUCT COMPLAINT [None]
